FAERS Safety Report 15317490 (Version 1)
Quarter: 2018Q3

REPORT INFORMATION
  Report Type: Spontaneous
  Country: US (occurrence: US)
  Receive Date: 20180824
  Receipt Date: 20180824
  Transmission Date: 20181010
  Serious: No
  Sender: FDA-Public Use
  Company Number: PHHY2017US194858

PATIENT
  Age: 23 Year
  Sex: Female

DRUGS (5)
  1. CALCIUM [Concomitant]
     Active Substance: CALCIUM
     Dosage: 800 MG, QD
     Route: 065
  2. BUTABARBITAL [Concomitant]
     Active Substance: BUTABARBITAL
     Indication: PRODUCT USED FOR UNKNOWN INDICATION
     Dosage: 30 MG, QH
     Route: 065
  3. HYDROCORTISONE. [Suspect]
     Active Substance: HYDROCORTISONE
     Dosage: 200 MG, QD
     Route: 065
  4. HYDROCORTISONE. [Suspect]
     Active Substance: HYDROCORTISONE
     Indication: MYOSITIS OSSIFICANS
     Dosage: 50 MG, QD
     Route: 065
  5. CALCIUM [Concomitant]
     Active Substance: CALCIUM
     Indication: PRODUCT USED FOR UNKNOWN INDICATION
     Dosage: 155 MG, QD
     Route: 065

REACTIONS (2)
  - Product use in unapproved indication [Unknown]
  - Swelling [Unknown]
